FAERS Safety Report 9964073 (Version 2)
Quarter: 2014Q1

REPORT INFORMATION
  Report Type: Spontaneous
  Country: JP (occurrence: JP)
  Receive Date: 20140305
  Receipt Date: 20140324
  Transmission Date: 20141002
  Serious: Yes (Death, Hospitalization)
  Sender: FDA-Public Use
  Company Number: JP-GLAXOSMITHKLINE-B0973852A

PATIENT
  Age: 38 Year
  Sex: Female

DRUGS (1)
  1. ARRANON [Suspect]
     Indication: ACUTE LYMPHOCYTIC LEUKAEMIA
     Dosage: 2300MG ALTERNATE DAYS
     Route: 042
     Dates: start: 20140120, end: 20140124

REACTIONS (14)
  - Convulsion [Recovered/Resolved]
  - Loss of consciousness [Recovered/Resolved]
  - Depressed level of consciousness [Unknown]
  - Dyskinesia [Recovered/Resolved]
  - Speech disorder [Recovered/Resolved]
  - Dysarthria [Unknown]
  - Dizziness [Recovered/Resolved]
  - Visual impairment [Unknown]
  - Nervous system disorder [Unknown]
  - Tremor [Recovered/Resolved]
  - Hypercalcaemia [Unknown]
  - Mass [Unknown]
  - Oxygen saturation decreased [Unknown]
  - Disease progression [Fatal]
